FAERS Safety Report 23366708 (Version 1)
Quarter: 2024Q1

REPORT INFORMATION
  Report Type: Spontaneous
  Country: CN (occurrence: CN)
  Receive Date: 20240104
  Receipt Date: 20240104
  Transmission Date: 20240410
  Serious: Yes (Hospitalization, Other)
  Sender: FDA-Public Use
  Company Number: CN-PFIZER INC-PV202300209742

PATIENT
  Age: 44 Year
  Sex: Female
  Weight: 51 kg

DRUGS (17)
  1. DIFLUCAN [Suspect]
     Active Substance: FLUCONAZOLE
     Indication: Pulmonary tuberculosis
     Dosage: 300 MG, 1X/DAY
     Route: 048
     Dates: start: 20231203, end: 20231206
  2. DIFLUCAN [Suspect]
     Active Substance: FLUCONAZOLE
     Indication: Pneumonia bacterial
  3. DIFLUCAN [Suspect]
     Active Substance: FLUCONAZOLE
     Indication: Fungal infection
  4. PYRAZINAMIDE [Suspect]
     Active Substance: PYRAZINAMIDE
     Indication: Pulmonary tuberculosis
     Dosage: 0.5 G, 3X/DAY
     Route: 048
     Dates: start: 20231129, end: 20231207
  5. PYRAZINAMIDE [Suspect]
     Active Substance: PYRAZINAMIDE
     Indication: Pneumonia bacterial
  6. PYRAZINAMIDE [Suspect]
     Active Substance: PYRAZINAMIDE
     Indication: Tuberculosis
  7. RIFAMPIN [Suspect]
     Active Substance: RIFAMPIN
     Indication: Pulmonary tuberculosis
     Dosage: 0.6 G, 1X/DAY
     Route: 041
     Dates: start: 20231129, end: 20231207
  8. RIFAMPIN [Suspect]
     Active Substance: RIFAMPIN
     Indication: Pneumonia bacterial
  9. RIFAMPIN [Suspect]
     Active Substance: RIFAMPIN
     Indication: Tuberculosis
  10. CEFOPERAZONE SODIUM\SULBACTAM SODIUM [Suspect]
     Active Substance: CEFOPERAZONE SODIUM\SULBACTAM SODIUM
     Indication: Pulmonary tuberculosis
     Dosage: 2 G, 3X/DAY
     Route: 041
     Dates: start: 20231129, end: 20231207
  11. CEFOPERAZONE SODIUM\SULBACTAM SODIUM [Suspect]
     Active Substance: CEFOPERAZONE SODIUM\SULBACTAM SODIUM
     Indication: Pneumonia bacterial
  12. ISONIAZID [Concomitant]
     Active Substance: ISONIAZID
     Indication: Pulmonary tuberculosis
     Dosage: 0.3 G, 1X/DAY
     Route: 048
     Dates: start: 20231129, end: 20231211
  13. ISONIAZID [Concomitant]
     Active Substance: ISONIAZID
     Indication: Pneumonia bacterial
  14. ISONIAZID [Concomitant]
     Active Substance: ISONIAZID
     Indication: Tuberculosis
  15. ETHAMBUTOL HYDROCHLORIDE [Concomitant]
     Active Substance: ETHAMBUTOL HYDROCHLORIDE
     Indication: Pulmonary tuberculosis
     Dosage: 1 G, 1X/DAY
     Route: 048
     Dates: start: 20231129, end: 20231211
  16. ETHAMBUTOL HYDROCHLORIDE [Concomitant]
     Active Substance: ETHAMBUTOL HYDROCHLORIDE
     Indication: Pneumonia bacterial
  17. ETHAMBUTOL HYDROCHLORIDE [Concomitant]
     Active Substance: ETHAMBUTOL HYDROCHLORIDE
     Indication: Tuberculosis

REACTIONS (3)
  - Hepatic enzyme increased [Unknown]
  - Nausea [Unknown]
  - Decreased appetite [Unknown]

NARRATIVE: CASE EVENT DATE: 20231206
